FAERS Safety Report 16375076 (Version 1)
Quarter: 2019Q2

REPORT INFORMATION
  Report Type: Spontaneous
  Country: FR (occurrence: FR)
  Receive Date: 20190531
  Receipt Date: 20190531
  Transmission Date: 20190711
  Serious: Yes (Hospitalization, Other)
  Sender: FDA-Public Use
  Company Number: FR-AUROBINDO-AUR-APL-2018-058350

PATIENT

DRUGS (1)
  1. KETOPROFEN. [Suspect]
     Active Substance: KETOPROFEN
     Indication: INJURY
     Dosage: 200 MILLIGRAM, DAILY, KETOPROFENE LP
     Route: 048
     Dates: start: 20181104, end: 20181108

REACTIONS (3)
  - Acute kidney injury [Recovering/Resolving]
  - Nephritis allergic [Recovering/Resolving]
  - Back pain [Recovered/Resolved]

NARRATIVE: CASE EVENT DATE: 20181108
